FAERS Safety Report 20333902 (Version 2)
Quarter: 2022Q1

REPORT INFORMATION
  Report Type: Spontaneous
  Country: US (occurrence: US)
  Receive Date: 20220113
  Receipt Date: 20220113
  Transmission Date: 20220423
  Serious: Yes (Hospitalization, Other)
  Sender: FDA-Public Use
  Company Number: US-GILEAD-2022-0565097

PATIENT
  Sex: Male

DRUGS (2)
  1. TYBOST [Suspect]
     Active Substance: COBICISTAT
     Indication: HIV infection
     Route: 065
  2. AMINO ACIDS\CARBOHYDRATES\MINERALS\VITAMINS [Concomitant]
     Active Substance: AMINO ACIDS\CARBOHYDRATES\MINERALS\VITAMINS

REACTIONS (3)
  - Cerebrovascular accident [Not Recovered/Not Resolved]
  - Product dose omission issue [Unknown]
  - Wrong technique in product usage process [Unknown]
